FAERS Safety Report 9276583 (Version 5)
Quarter: 2014Q2

REPORT INFORMATION
  Report Type: Report from Study
  Country: DE (occurrence: DE)
  Receive Date: 20130507
  Receipt Date: 20140630
  Transmission Date: 20141212
  Serious: Yes (Hospitalization, Other)
  Sender: FDA-Public Use
  Company Number: DE-BAYER-2013-019353

PATIENT
  Age: 17 Year
  Sex: Female
  Weight: 55 kg

DRUGS (6)
  1. BETAFERON [Suspect]
     Indication: RELAPSING-REMITTING MULTIPLE SCLEROSIS
     Dosage: 8 MIU, UNK
     Dates: start: 20121023, end: 20130327
  2. COPAXONE [Suspect]
     Indication: MULTIPLE SCLEROSIS
     Dosage: 20 MG, QD
     Route: 058
     Dates: start: 201303
  3. VIGANTOLETTEN [Concomitant]
     Dosage: DAILY DOSE 1000/IE
     Route: 048
     Dates: start: 201206
  4. RAMIPRIL [Concomitant]
     Indication: PROTEINURIA
     Dosage: 5 MG, QD
     Dates: start: 201303
  5. RAMIPRIL [Concomitant]
     Indication: HYPERTENSION
  6. CLEXANE [Concomitant]
     Indication: THROMBOSIS PROPHYLAXIS
     Dosage: 40 MG, QD
     Route: 058
     Dates: start: 201303

REACTIONS (4)
  - Nephrotic syndrome [Recovering/Resolving]
  - Lymphadenopathy [Recovering/Resolving]
  - Proteinuria [Recovering/Resolving]
  - Headache [Recovering/Resolving]
